FAERS Safety Report 8811121 (Version 1)
Quarter: 2012Q4

REPORT INFORMATION
  Report Type: Spontaneous
  Country: IN (occurrence: None)
  Receive Date: 20120921
  Receipt Date: 20120921
  Transmission Date: 20130627
  Serious: Yes (Hospitalization, Other)
  Sender: FDA-Public Use
  Company Number: 2012P1056300

PATIENT
  Age: 20 Year
  Sex: Female

DRUGS (2)
  1. DICLOFENAC [Suspect]
     Route: 048
  2. DICLOFENAC [Suspect]
     Route: 048

REACTIONS (4)
  - Oligohydramnios [None]
  - Placental insufficiency [None]
  - Caesarean section [None]
  - Exposure during pregnancy [None]
